FAERS Safety Report 6504804-0 (Version None)
Quarter: 2009Q4

REPORT INFORMATION
  Report Type: 
  Country: None (occurrence: None)
  Receive Date: 20091215
  Receipt Date: 20091202
  Transmission Date: 20100525
  Serious: Yes (Other)
  Sender: FDA-Public Use
  Company Number: 2009AP004902

PATIENT
  Age: 23 Year
  Sex: Male

DRUGS (1)
  1. BALSALAZIDE DISODIUM [Suspect]
     Indication: COLITIS ULCERATIVE

REACTIONS (3)
  - CHEST PAIN [None]
  - EOSINOPHILIC PNEUMONIA [None]
  - PLEURAL EFFUSION [None]
